FAERS Safety Report 5394855-4 (Version None)
Quarter: 2007Q3

REPORT INFORMATION
  Report Type: 
  Country: None (occurrence: None)
  Receive Date: 20070720
  Receipt Date: 20070704
  Transmission Date: 20080115
  Serious: Yes (Hospitalization)
  Sender: FDA-Public Use
  Company Number: 2007JP003178

PATIENT
  Age: 63 Year
  Sex: Female
  Weight: 39.5 kg

DRUGS (10)
  1. PROGRAF [Suspect]
     Indication: LUPUS NEPHRITIS
     Dosage: 1.5 MG, UID/QD, ORAL
     Route: 048
     Dates: start: 20070508, end: 20070514
  2. PREDNISOLONE [Concomitant]
  3. ENALAPRIL MALEATE [Concomitant]
  4. ASPIRIN [Concomitant]
  5. LIPITOR ATORVASTATIN CAPCIUM) [Concomitant]
  6. NATEGLINIDE [Concomitant]
  7. SLOW-K [Concomitant]
  8. LENDORM [Concomitant]
  9. OMEPRAZOLE [Concomitant]
  10. STEROID FORMULATION UNKNOWN [Concomitant]

REACTIONS (4)
  - BLOOD SODIUM DECREASED [None]
  - DRUG LEVEL INCREASED [None]
  - ELECTROLYTE IMBALANCE [None]
  - GRANULOCYTE COUNT DECREASED [None]
